FAERS Safety Report 5962580-4 (Version None)
Quarter: 2008Q4

REPORT INFORMATION
  Report Type: 
  Country: None (occurrence: None)
  Receive Date: 20081121
  Receipt Date: 20081112
  Transmission Date: 20090506
  Serious: Yes (Other)
  Sender: FDA-Public Use
  Company Number: CA-PFIZER INC-2008096068

PATIENT
  Age: 50 Year
  Sex: Female

DRUGS (1)
  1. LYRICA [Suspect]
     Indication: PAIN
     Route: 048
     Dates: start: 20070101, end: 20071201

REACTIONS (4)
  - DRUG INEFFECTIVE [None]
  - LUNG DISORDER [None]
  - POLLAKIURIA [None]
  - WEIGHT INCREASED [None]
